FAERS Safety Report 8973214 (Version 1)
Quarter: 2012Q4

REPORT INFORMATION
  Report Type: 
  Country: NL (occurrence: NL)
  Receive Date: 20121218
  Receipt Date: 20121218
  Transmission Date: 20130627
  Serious: Yes (Hospitalization)
  Sender: FDA-Public Use
  Company Number: NL-PFIZER INC-HQWYE213608MAR06

PATIENT
  Age: 16 Year
  Sex: Male

DRUGS (2)
  1. IBUPROFEN [Suspect]
     Dosage: 400.0 mg, 3x/day
     Route: 048
  2. AMOXICILLIN [Suspect]
     Dosage: 500.0 mg, 4x/day
     Route: 048

REACTIONS (4)
  - Drug interaction [Recovered/Resolved]
  - Enterocolitis haemorrhagic [Recovered/Resolved]
  - Haemolytic anaemia [Recovered/Resolved]
  - Thrombocytopenia [Recovered/Resolved]
